FAERS Safety Report 8108737-8 (Version None)
Quarter: 2012Q1

REPORT INFORMATION
  Report Type: 
  Country: None (occurrence: None)
  Receive Date: 20120202
  Receipt Date: 20120112
  Transmission Date: 20120608
  Serious: No
  Sender: FDA-Public Use
  Company Number: US-AMGEN-USASP2011046539

PATIENT
  Age: 13 Year
  Sex: Male
  Weight: 58 kg

DRUGS (2)
  1. ENBREL [Suspect]
     Indication: JUVENILE ARTHRITIS
     Dosage: 50 MG, QWK
     Route: 058
     Dates: start: 20110831
  2. VOLTAREN [Concomitant]
     Indication: PAIN
     Dosage: 75 MG, BID
     Route: 048
     Dates: start: 20110613

REACTIONS (6)
  - NAUSEA [None]
  - GASTROOESOPHAGEAL REFLUX DISEASE [None]
  - NASAL CONGESTION [None]
  - ANXIETY [None]
  - RHINORRHOEA [None]
  - HEADACHE [None]
